FAERS Safety Report 24540895 (Version 3)
Quarter: 2025Q3

REPORT INFORMATION
  Report Type: Spontaneous
  Country: US (occurrence: US)
  Receive Date: 20241023
  Receipt Date: 20250910
  Transmission Date: 20251020
  Serious: No
  Sender: AMGEN
  Company Number: US-AMGEN-USASP2024209079

PATIENT
  Sex: Male

DRUGS (13)
  1. OTEZLA [Suspect]
     Active Substance: APREMILAST
     Indication: Psoriasis
     Dosage: 30 MILLIGRAM, BID
     Route: 048
     Dates: start: 20190221
  2. ATORVASTATIN [Concomitant]
     Active Substance: ATORVASTATIN
  3. AZELASTINE [Concomitant]
     Active Substance: AZELASTINE
  4. CALCIPOTRIENE [Concomitant]
     Active Substance: CALCIPOTRIENE
  5. ENSTILAR [Concomitant]
     Active Substance: BETAMETHASONE DIPROPIONATE\CALCIPOTRIENE HYDRATE
  6. HUMALOG [Concomitant]
     Active Substance: INSULIN LISPRO
  7. MEFLOQUINE [Concomitant]
     Active Substance: MEFLOQUINE
  8. OMEPRAZOLE [Concomitant]
     Active Substance: OMEPRAZOLE
  9. OZEMPIC [Concomitant]
     Active Substance: SEMAGLUTIDE
  10. OZEMPIC [Concomitant]
     Active Substance: SEMAGLUTIDE
  11. OZEMPIC [Concomitant]
     Active Substance: SEMAGLUTIDE
  12. TOPIRAMATE [Concomitant]
     Active Substance: TOPIRAMATE
  13. VITAMIN D [Concomitant]
     Active Substance: VITAMIN D NOS

REACTIONS (3)
  - Therapy non-responder [Unknown]
  - Headache [Unknown]
  - Psoriasis [Unknown]
